FAERS Safety Report 5603347-6 (Version None)
Quarter: 2008Q1

REPORT INFORMATION
  Report Type: 
  Country: None (occurrence: None)
  Receive Date: 20080122
  Receipt Date: 20080107
  Transmission Date: 20080703
  Serious: Yes (Other)
  Sender: FDA-Public Use
  Company Number: GB-1164952

PATIENT
  Age: 72 Year
  Sex: Female

DRUGS (10)
  1. BSS [Suspect]
     Route: 031
     Dates: start: 20070605, end: 20070605
  2. CHLORAMPHENICOL [Suspect]
     Dates: start: 20070605
  3. CYCLOPENTOLATE HYDROCHLORIDE [Concomitant]
  4. HYALURONATE SODIUM (HYALURONATE SODIUM) [Concomitant]
  5. LIDOCAINE [Concomitant]
  6. NEOMYCIN [Concomitant]
  7. OCUFEN [Concomitant]
  8. PHENYLEPHRINE (PHENYLEPHRINE) [Concomitant]
  9. POVIDONE IODINE [Concomitant]
  10. VANCOMYCIN [Concomitant]

REACTIONS (1)
  - TOXIC ANTERIOR SEGMENT SYNDROME [None]
